FAERS Safety Report 4585795-9 (Version None)
Quarter: 2005Q1

REPORT INFORMATION
  Report Type: 
  Country: None (occurrence: None)
  Receive Date: 20050215
  Receipt Date: 20050131
  Transmission Date: 20050727
  Serious: No
  Sender: FDA-Public Use
  Company Number: 601730

PATIENT
  Age: 14 Month
  Sex: Male

DRUGS (3)
  1. ADVATE [Suspect]
     Indication: FACTOR VIII DEFICIENCY
     Dosage: 250 IU; PRN; INTRAVENOUS
     Route: 042
     Dates: start: 20040502, end: 20040501
  2. ADVATE [Suspect]
     Indication: SUBDURAL HAEMATOMA
     Dosage: 250 IU; PRN; INTRAVENOUS
     Route: 042
     Dates: start: 20040502, end: 20040501
  3. VALPROIC ACID [Concomitant]

REACTIONS (2)
  - ANTIBODY TEST POSITIVE [None]
  - INHIBITING ANTIBODIES [None]
